FAERS Safety Report 6010230-3 (Version None)
Quarter: 2008Q4

REPORT INFORMATION
  Report Type: 
  Country: None (occurrence: None)
  Receive Date: 20081218
  Receipt Date: 20080125
  Transmission Date: 20090506
  Serious: No
  Sender: FDA-Public Use
  Company Number: A0705475A

PATIENT
  Age: 60 Year
  Sex: Female
  Weight: 63.6 kg

DRUGS (5)
  1. FLUTICASONE PROPIONATE [Suspect]
     Dosage: 2SPR IN THE MORNING
     Route: 045
     Dates: start: 20060201
  2. MULTI-VITAMIN [Concomitant]
     Dosage: 1TAB PER DAY
  3. FLAX SEED OIL [Concomitant]
  4. NIACIN [Concomitant]
  5. FISH OIL [Concomitant]

REACTIONS (3)
  - BLOOD CHOLESTEROL INCREASED [None]
  - BLOOD PRESSURE INCREASED [None]
  - HEADACHE [None]
